FAERS Safety Report 18571541 (Version 1)
Quarter: 2020Q4

REPORT INFORMATION
  Report Type: Spontaneous
  Country: VN (occurrence: VN)
  Receive Date: 20201202
  Receipt Date: 20201202
  Transmission Date: 20210114
  Serious: Yes (Other)
  Sender: FDA-Public Use
  Company Number: VN-BAYER-2020-257598

PATIENT
  Age: 62 Year
  Sex: Female

DRUGS (2)
  1. NEXAVAR [Suspect]
     Active Substance: SORAFENIB
     Indication: HEPATOCELLULAR CARCINOMA
     Dosage: 800 MG DAY
     Route: 048
     Dates: start: 201903
  2. NEXAVAR [Suspect]
     Active Substance: SORAFENIB
     Indication: HEPATOCELLULAR CARCINOMA
     Dosage: 400 MG DAY
     Route: 048
     Dates: end: 202007

REACTIONS (4)
  - Hepatocellular carcinoma [None]
  - Discomfort [None]
  - Palmar-plantar erythrodysaesthesia syndrome [None]
  - Fatigue [None]

NARRATIVE: CASE EVENT DATE: 201903
